FAERS Safety Report 7811369-X (Version None)
Quarter: 2011Q4

REPORT INFORMATION
  Report Type: 
  Country: None (occurrence: None)
  Receive Date: 20111013
  Receipt Date: 20111005
  Transmission Date: 20120403
  Serious: Yes (Other)
  Sender: FDA-Public Use
  Company Number: US-PFIZER INC-2011234207

PATIENT
  Age: 31 Year
  Sex: Female
  Weight: 54.422 kg

DRUGS (3)
  1. TYGACIL [Suspect]
     Indication: INFECTIOUS PERITONITIS
  2. TYGACIL [Suspect]
     Indication: ABDOMINAL INFECTION
     Dosage: UNK
     Route: 042
     Dates: start: 20110901
  3. TYGACIL [Suspect]
     Indication: APPENDIX DISORDER

REACTIONS (11)
  - WHITE BLOOD CELL COUNT INCREASED [None]
  - NASOPHARYNGITIS [None]
  - MIDDLE INSOMNIA [None]
  - DIARRHOEA [None]
  - NAUSEA [None]
  - ADVERSE DRUG REACTION [None]
  - FATIGUE [None]
  - HYPERHIDROSIS [None]
  - ANAEMIA [None]
  - RASH [None]
  - ASTHENIA [None]
